FAERS Safety Report 4295914-X (Version None)
Quarter: 2004Q1

REPORT INFORMATION
  Report Type: 
  Country: None (occurrence: None)
  Receive Date: 20040216
  Receipt Date: 20031205
  Transmission Date: 20041129
  Serious: No
  Sender: FDA-Public Use
  Company Number: US-GLAXOSMITHKLINE-A0442153A

PATIENT
  Age: 31 Year
  Sex: Female

DRUGS (4)
  1. LAMICTAL [Suspect]
     Dosage: 50MG PER DAY
     Route: 048
     Dates: start: 20031114
  2. ALLEGRA-D [Concomitant]
  3. XANAX [Concomitant]
     Dosage: 5U PER DAY
     Route: 065
  4. ZOLOFT [Concomitant]
     Dosage: 150MG PER DAY
     Route: 065

REACTIONS (1)
  - RASH [None]
